FAERS Safety Report 12254396 (Version 1)
Quarter: 2016Q2

REPORT INFORMATION
  Report Type: Spontaneous
  Country: US (occurrence: US)
  Receive Date: 20160411
  Receipt Date: 20160411
  Transmission Date: 20160815
  Serious: Yes (Other)
  Sender: FDA-Public Use
  Company Number: US-BAYER-2016-055140

PATIENT
  Age: 67 Year
  Sex: Male

DRUGS (2)
  1. XOFIGO [Suspect]
     Active Substance: RADIUM RA-223 DICHLORIDE
     Indication: METASTASES TO BONE
     Dosage: 50KBQ/KG
     Route: 042
     Dates: start: 20160229, end: 20160229
  2. XOFIGO [Suspect]
     Active Substance: RADIUM RA-223 DICHLORIDE
     Indication: PROSTATE CANCER STAGE IV
     Dosage: 50KBQ PER KG
     Route: 042
     Dates: start: 20151201, end: 20151201

REACTIONS (13)
  - Acne [None]
  - Feeling abnormal [None]
  - Back pain [Recovered/Resolved]
  - Prostatic specific antigen increased [None]
  - Blood testosterone increased [None]
  - Diarrhoea [None]
  - Blood magnesium decreased [Recovered/Resolved]
  - Lethargy [None]
  - Abdominal discomfort [None]
  - Helicobacter gastritis [None]
  - Blood count abnormal [None]
  - Drug ineffective [None]
  - Neutrophil count decreased [None]

NARRATIVE: CASE EVENT DATE: 20151201
